FAERS Safety Report 9535413 (Version 2)
Quarter: 2013Q3

REPORT INFORMATION
  Report Type: Spontaneous
  Country: GB (occurrence: GB)
  Receive Date: 20130918
  Receipt Date: 20130920
  Transmission Date: 20140515
  Serious: Yes (Other)
  Sender: FDA-Public Use
  Company Number: GB-VERTEX PHARMACEUTICALS INC-2013-009646

PATIENT
  Age: 35 Year
  Sex: Female
  Weight: 56.5 kg

DRUGS (3)
  1. INCIVO [Suspect]
     Indication: PRODUCT USED FOR UNKNOWN INDICATION
     Dosage: 375 MG, TID
     Route: 048
     Dates: start: 20130530, end: 20130813
  2. COPEGUS [Concomitant]
     Indication: HEPATITIS C
     Dosage: UNK
     Route: 048
     Dates: start: 20130530
  3. PEGASYS [Concomitant]
     Indication: HEPATITIS C
     Dosage: 135 ?G, UNK
     Route: 058
     Dates: start: 20130530

REACTIONS (1)
  - Rash [Recovered/Resolved]
